FAERS Safety Report 9781929 (Version 1)
Quarter: 2013Q4

REPORT INFORMATION
  Report Type: Spontaneous
  Country: US (occurrence: US)
  Receive Date: 20131225
  Receipt Date: 20131225
  Transmission Date: 20140711
  Serious: No
  Sender: FDA-Public Use
  Company Number: US-009507513-1312USA009911

PATIENT
  Sex: Male

DRUGS (9)
  1. JANUMET [Suspect]
     Indication: DIABETES MELLITUS
     Dosage: UNK, BID; 50/1000 MG
     Route: 048
     Dates: start: 2008, end: 20131219
  2. ATORVASTATIN [Concomitant]
  3. BYSTOLIC [Concomitant]
  4. AMLODIPINE [Concomitant]
  5. SPIRONOLACTONE [Concomitant]
  6. LISINOPRIL [Concomitant]
  7. ALLOPURINOL [Concomitant]
  8. WARFARIN SODIUM [Concomitant]
  9. CHLORTHALIDONE [Concomitant]

REACTIONS (2)
  - Blood potassium increased [Not Recovered/Not Resolved]
  - Renal disorder [Not Recovered/Not Resolved]
